FAERS Safety Report 9642960 (Version 2)
Quarter: 2013Q4

REPORT INFORMATION
  Report Type: Report from Study
  Country: US (occurrence: US)
  Receive Date: 20131024
  Receipt Date: 20131024
  Transmission Date: 20140711
  Serious: Yes (Other)
  Sender: FDA-Public Use
  Company Number: PHHO2013US006117

PATIENT
  Age: 64 Year
  Sex: Male

DRUGS (1)
  1. SOM230 [Suspect]
     Indication: PANCREATIC CARCINOMA
     Dosage: 900 UG, BID
     Route: 058
     Dates: start: 20130429, end: 20130429

REACTIONS (15)
  - Hyperglycaemia [Recovered/Resolved]
  - Amylase [Unknown]
  - Post procedural bile leak [Unknown]
  - Supraventricular tachycardia [Unknown]
  - Anaemia [Unknown]
  - Pleural effusion [Unknown]
  - Ascites [Unknown]
  - Wound infection [Unknown]
  - Upper gastrointestinal haemorrhage [Unknown]
  - Lung infection [Unknown]
  - Sepsis [Unknown]
  - Acute respiratory distress syndrome [Recovered/Resolved]
  - Urinary tract infection [Unknown]
  - Sinus bradycardia [Recovered/Resolved]
  - Bronchial obstruction [Unknown]
